FAERS Safety Report 10355580 (Version 2)
Quarter: 2014Q4

REPORT INFORMATION
  Report Type: Spontaneous
  Country: US (occurrence: None)
  Receive Date: 20140728
  Receipt Date: 20141105
  Transmission Date: 20150528
  Serious: Yes (Hospitalization)
  Sender: FDA-Public Use
  Company Number: UNT-2014-004202

PATIENT
  Sex: Female

DRUGS (8)
  1. PREDNISONE (PREDNISONE) [Concomitant]
     Active Substance: PREDNISONE
  2. DIOVAN [Concomitant]
     Active Substance: VALSARTAN
  3. TYVASO [Suspect]
     Active Substance: TREPROSTINIL
     Indication: COR PULMONALE CHRONIC
     Route: 055
     Dates: start: 20130305, end: 20140717
  4. LETAIRIS [Concomitant]
     Active Substance: AMBRISENTAN
  5. FERROUS SULFATE [Concomitant]
     Active Substance: FERROUS SULFATE\FERROUS SULFATE, DRIED
  6. REVATIO (SILDENAFIL CITRATE) [Concomitant]
  7. CELLCEPT /01275102/ (MYCOPHENOLATE MOFETIL) [Concomitant]
  8. OMEPRAZOLE (OMEPRAZOLE) [Concomitant]
     Active Substance: OMEPRAZOLE

REACTIONS (1)
  - Lung transplant [None]

NARRATIVE: CASE EVENT DATE: 20140629
